FAERS Safety Report 6766649-6 (Version None)
Quarter: 2010Q2

REPORT INFORMATION
  Report Type: 
  Country: None (occurrence: None)
  Receive Date: 20100609
  Receipt Date: 20100527
  Transmission Date: 20101027
  Serious: Yes (Disabling)
  Sender: FDA-Public Use
  Company Number: 2010AL003231

PATIENT
  Age: 68 Year
  Sex: Male

DRUGS (3)
  1. DICLOFENAC SODIUM [Suspect]
     Indication: POSTOPERATIVE HERNIA
     Dosage: 50 MG, PO
     Route: 048
     Dates: start: 20100201, end: 20100320
  2. PROSTIN E2 [Concomitant]
  3. CETIRIZINE HCL [Concomitant]

REACTIONS (1)
  - MYALGIA [None]
